FAERS Safety Report 5120402-8 (Version None)
Quarter: 2006Q4

REPORT INFORMATION
  Report Type: 
  Country: None (occurrence: None)
  Receive Date: 20061004
  Receipt Date: 20060223
  Transmission Date: 20070319
  Serious: Yes (Hospitalization)
  Sender: FDA-Public Use
  Company Number: FR-GLAXOSMITHKLINE-B0413795A

PATIENT
  Age: 76 Year
  Sex: Male

DRUGS (7)
  1. AUGMENTIN [Suspect]
     Dosage: 3G PER DAY
     Route: 048
     Dates: start: 20060117, end: 20060118
  2. SOLUPRED [Suspect]
     Dosage: 60MG PER DAY
     Route: 048
     Dates: start: 20060117, end: 20060118
  3. LEXOMIL [Suspect]
     Dosage: .5UNIT PER DAY
     Route: 048
  4. ASPIRIN [Suspect]
     Dosage: 75MG PER DAY
     Route: 048
  5. ATACAND [Suspect]
     Dosage: 1UNIT PER DAY
     Route: 048
  6. LOZOL [Suspect]
     Dosage: 1UNIT PER DAY
     Route: 048
  7. UNKNOWN NAME [Concomitant]

REACTIONS (4)
  - ANAEMIA [None]
  - BONE MARROW FAILURE [None]
  - LEUKOPENIA [None]
  - LYMPHOPENIA [None]
